FAERS Safety Report 13256518 (Version 1)
Quarter: 2017Q1

REPORT INFORMATION
  Report Type: Spontaneous
  Country: US (occurrence: US)
  Receive Date: 20170221
  Receipt Date: 20170221
  Transmission Date: 20170428
  Serious: Yes (Other)
  Sender: FDA-Public Use
  Company Number: US-PFIZER INC-2017069133

PATIENT

DRUGS (4)
  1. AMPICILLIN SODIUM. [Suspect]
     Active Substance: AMPICILLIN SODIUM
     Indication: ASTHMA
     Dosage: UNK
  2. TINIDAZOLE. [Suspect]
     Active Substance: TINIDAZOLE
     Indication: ASTHMA
     Dosage: UNK
  3. TINIDAZOLE. [Suspect]
     Active Substance: TINIDAZOLE
     Indication: SLEEP APNOEA SYNDROME
  4. AMPICILLIN SODIUM. [Suspect]
     Active Substance: AMPICILLIN SODIUM
     Indication: SLEEP APNOEA SYNDROME

REACTIONS (5)
  - Brain injury [Unknown]
  - Speech disorder [Unknown]
  - Deafness [Unknown]
  - Dysarthria [Unknown]
  - Aphasia [Unknown]
